FAERS Safety Report 4505039-3 (Version None)
Quarter: 2004Q4

REPORT INFORMATION
  Report Type: 
  Country: None (occurrence: None)
  Receive Date: 20041116
  Receipt Date: 20041027
  Transmission Date: 20050328
  Serious: Yes (Other)
  Sender: FDA-Public Use
  Company Number: 10064830-NA01-0

PATIENT
  Age: 57 Year
  Sex: Female

DRUGS (6)
  1. SODIUM CHLORIDE 0.9% [Suspect]
     Indication: ABDOMINAL PAIN
     Dosage: INTRAVENOUS
     Route: 042
     Dates: start: 20041001, end: 20041002
  2. SODIUM CHLORIDE 0.9% [Suspect]
     Indication: NAUSEA
     Dosage: INTRAVENOUS
     Route: 042
     Dates: start: 20041001, end: 20041002
  3. BETALOC (METOPROLOL) [Concomitant]
  4. INHIBACE [Concomitant]
  5. ASPIRIN [Concomitant]
  6. SIMVASTATIN [Concomitant]

REACTIONS (1)
  - HYPERSENSITIVITY [None]
